FAERS Safety Report 11729863 (Version 2)
Quarter: 2015Q4

REPORT INFORMATION
  Report Type: Report from Study
  Country: ES (occurrence: ES)
  Receive Date: 20151112
  Receipt Date: 20151208
  Transmission Date: 20160304
  Serious: Yes (Hospitalization)
  Sender: FDA-Public Use
  Company Number: ES-ABBVIE-15P-144-1497257-00

PATIENT
  Age: 74 Year
  Sex: Male

DRUGS (3)
  1. DUODOPA [Suspect]
     Active Substance: CARBIDOPA\LEVODOPA
     Indication: PARKINSON^S DISEASE
     Dosage: 24 HOURS A DAY, CONTINOUS INFUSION DURING 24 HOURS
     Route: 065
     Dates: start: 20151001
  2. APOMORPHINE [Suspect]
     Active Substance: APOMORPHINE
     Dosage: PENS
     Route: 065
  3. APOMORPHINE [Suspect]
     Active Substance: APOMORPHINE
     Indication: PARKINSON^S DISEASE
     Dosage: INFUSION PUMP
     Route: 065

REACTIONS (7)
  - Blood creatine phosphokinase increased [Unknown]
  - Freezing phenomenon [Not Recovered/Not Resolved]
  - Akinesia [Unknown]
  - Autonomic nervous system imbalance [Recovered/Resolved]
  - Diarrhoea [Recovered/Resolved]
  - Hypertension [Recovered/Resolved]
  - Neuroleptic malignant syndrome [Recovered/Resolved]

NARRATIVE: CASE EVENT DATE: 201510
